FAERS Safety Report 16661889 (Version 3)
Quarter: 2019Q3

REPORT INFORMATION
  Report Type: Spontaneous
  Country: US (occurrence: US)
  Receive Date: 20190802
  Receipt Date: 20190911
  Transmission Date: 20191004
  Serious: Yes (Hospitalization)
  Sender: FDA-Public Use
  Company Number: US-BAYER-2019-139139

PATIENT
  Age: 13 Year
  Sex: Male

DRUGS (22)
  1. KOGENATE FS [Suspect]
     Active Substance: ANTIHEMOPHILIC FACTOR, HUMAN RECOMBINANT
     Indication: HAEMOPHILIA
     Dosage: 2500 U, ONCE
     Route: 042
     Dates: start: 20190322, end: 20190322
  2. KOGENATE FS [Suspect]
     Active Substance: ANTIHEMOPHILIC FACTOR, HUMAN RECOMBINANT
     Indication: HAEMOPHILIA
     Dosage: 2500 U, ONCE
     Route: 042
     Dates: start: 20190329, end: 20190329
  3. KOGENATE FS [Suspect]
     Active Substance: ANTIHEMOPHILIC FACTOR, HUMAN RECOMBINANT
     Indication: HAEMOPHILIA
     Dosage: 2500 U, ONCE
     Route: 042
     Dates: start: 20190405, end: 20190405
  4. KOGENATE FS [Suspect]
     Active Substance: ANTIHEMOPHILIC FACTOR, HUMAN RECOMBINANT
     Indication: HAEMOPHILIA
     Dosage: 2500 U, ONCE
     Route: 042
     Dates: start: 20190409, end: 20190409
  5. KOGENATE FS [Suspect]
     Active Substance: ANTIHEMOPHILIC FACTOR, HUMAN RECOMBINANT
     Indication: HAEMOPHILIA
     Dosage: 2500 U, ONCE
     Route: 042
     Dates: start: 20190412, end: 20190412
  6. KOGENATE FS [Suspect]
     Active Substance: ANTIHEMOPHILIC FACTOR, HUMAN RECOMBINANT
     Indication: HAEMOPHILIA
     Dosage: 2500 U, ONCE
     Route: 042
     Dates: start: 20190619, end: 20190619
  7. KOGENATE FS [Suspect]
     Active Substance: ANTIHEMOPHILIC FACTOR, HUMAN RECOMBINANT
     Indication: HAEMOPHILIA
     Dosage: 2500 U, ONCE
     Route: 042
     Dates: start: 20190503, end: 20190503
  8. KOGENATE FS [Suspect]
     Active Substance: ANTIHEMOPHILIC FACTOR, HUMAN RECOMBINANT
     Indication: HAEMOPHILIA
     Dosage: 2500 U, ONCE
     Route: 042
     Dates: start: 20190416, end: 20190416
  9. KOGENATE FS [Suspect]
     Active Substance: ANTIHEMOPHILIC FACTOR, HUMAN RECOMBINANT
     Indication: HAEMOPHILIA
     Dosage: 2500 U, ONCE
     Route: 042
     Dates: start: 20190506, end: 20190506
  10. KOGENATE FS [Suspect]
     Active Substance: ANTIHEMOPHILIC FACTOR, HUMAN RECOMBINANT
     Indication: HAEMOPHILIA
     Dosage: 2500 U, ONCE
     Route: 042
     Dates: start: 20190611, end: 20190611
  11. KOGENATE FS [Suspect]
     Active Substance: ANTIHEMOPHILIC FACTOR, HUMAN RECOMBINANT
     Indication: HAEMOPHILIA
     Dosage: 2500 U, ONCE
     Route: 042
     Dates: start: 20190521, end: 20190521
  12. KOGENATE FS [Suspect]
     Active Substance: ANTIHEMOPHILIC FACTOR, HUMAN RECOMBINANT
     Indication: HAEMOPHILIA
     Dosage: 2500 U, ONCE
     Route: 042
     Dates: start: 20190531, end: 20190531
  13. KOGENATE FS [Suspect]
     Active Substance: ANTIHEMOPHILIC FACTOR, HUMAN RECOMBINANT
     Indication: HAEMOPHILIA
     Dosage: 2500 U, ONCE
     Route: 042
     Dates: start: 20190607, end: 20190607
  14. KOGENATE FS [Suspect]
     Active Substance: ANTIHEMOPHILIC FACTOR, HUMAN RECOMBINANT
     Indication: HAEMOPHILIA
     Dosage: 2500 U, ONCE
     Route: 042
     Dates: start: 20190621, end: 20190621
  15. KOGENATE FS [Suspect]
     Active Substance: ANTIHEMOPHILIC FACTOR, HUMAN RECOMBINANT
     Indication: RENAL HAEMORRHAGE
     Dosage: UNK
     Route: 042
     Dates: start: 201906, end: 201906
  16. KOGENATE FS [Suspect]
     Active Substance: ANTIHEMOPHILIC FACTOR, HUMAN RECOMBINANT
     Indication: HAEMOPHILIA
     Dosage: 2500 U, ONCE
     Route: 042
     Dates: start: 20190430, end: 20190430
  17. KOGENATE FS [Suspect]
     Active Substance: ANTIHEMOPHILIC FACTOR, HUMAN RECOMBINANT
     Indication: HAEMOPHILIA
     Dosage: 2500 U, ONCE
     Route: 042
     Dates: start: 20190517, end: 20190517
  18. KOGENATE FS [Suspect]
     Active Substance: ANTIHEMOPHILIC FACTOR, HUMAN RECOMBINANT
     Indication: HAEMOPHILIA
     Dosage: 2500 U, BIW
     Route: 042
  19. KOGENATE FS [Suspect]
     Active Substance: ANTIHEMOPHILIC FACTOR, HUMAN RECOMBINANT
     Indication: HAEMOPHILIA
     Dosage: 2500 U, ONCE
     Route: 042
     Dates: start: 20190326, end: 20190326
  20. KOGENATE FS [Suspect]
     Active Substance: ANTIHEMOPHILIC FACTOR, HUMAN RECOMBINANT
     Indication: HAEMOPHILIA
     Dosage: 2500 U, ONCE
     Route: 042
     Dates: start: 20190402, end: 20190402
  21. KOGENATE FS [Suspect]
     Active Substance: ANTIHEMOPHILIC FACTOR, HUMAN RECOMBINANT
     Indication: HAEMOPHILIA
     Dosage: 2500 U, ONCE
     Route: 042
     Dates: start: 20190510, end: 20190510
  22. KOGENATE FS [Suspect]
     Active Substance: ANTIHEMOPHILIC FACTOR, HUMAN RECOMBINANT
     Indication: HAEMOPHILIA
     Dosage: 2500 U, ONCE
     Route: 042
     Dates: start: 20190514, end: 20190514

REACTIONS (5)
  - Renal haemorrhage [Recovered/Resolved]
  - Recalled product administered [None]
  - Recalled product [None]
  - Haematuria [Recovered/Resolved]
  - Renal pain [Recovered/Resolved]

NARRATIVE: CASE EVENT DATE: 20190322
